FAERS Safety Report 24754189 (Version 1)
Quarter: 2024Q4

REPORT INFORMATION
  Report Type: Spontaneous
  Country: US (occurrence: US)
  Receive Date: 20241219
  Receipt Date: 20241219
  Transmission Date: 20250115
  Serious: No
  Sender: VISTAPHARM
  Company Number: US-VISTAPHARM-2024-US-029324

PATIENT
  Age: 38 Year
  Sex: Female
  Weight: 79.38 kg

DRUGS (5)
  1. VITAMIN D [Concomitant]
     Active Substance: VITAMIN D NOS
  2. PEPCID AC [Concomitant]
     Active Substance: FAMOTIDINE
  3. IRON [Concomitant]
     Active Substance: IRON
  4. VITAMINS [Concomitant]
     Active Substance: VITAMINS
  5. METHADONE HYDROCHLORIDE [Suspect]
     Active Substance: METHADONE HYDROCHLORIDE
     Indication: Product used for unknown indication
     Dosage: PRE-DOSED CUPS FROM CLINIC (140MG)
     Route: 048
     Dates: start: 2022

REACTIONS (4)
  - Nausea [Recovered/Resolved]
  - Diarrhoea [Recovered/Resolved]
  - Headache [Recovered/Resolved]
  - Product deposit [Unknown]

NARRATIVE: CASE EVENT DATE: 20240518
